FAERS Safety Report 8598344-5 (Version None)
Quarter: 2012Q3

REPORT INFORMATION
  Report Type: 
  Country: None (occurrence: None)
  Receive Date: 20120816
  Receipt Date: 20120803
  Transmission Date: 20120928
  Serious: Yes (Hospitalization, Other)
  Sender: FDA-Public Use
  Company Number: US-ELI_LILLY_AND_COMPANY-US201208002394

PATIENT
  Sex: Female

DRUGS (8)
  1. HUMALOG [Suspect]
     Dosage: 5 U, BID
  2. HUMALOG [Suspect]
     Indication: DIABETES MELLITUS
     Dosage: UNK UNK, UNKNOWN
     Route: 058
  3. HUMALOG [Suspect]
     Dosage: 5 U, BID
     Dates: start: 20110101
  4. HUMALOG [Suspect]
     Dosage: 5 U, BID
  5. HUMALOG [Suspect]
     Dosage: 5 U, BID
  6. HUMALOG [Suspect]
     Dosage: 5 U, BID
  7. HUMULIN 70/30 [Suspect]
     Indication: DIABETES MELLITUS
     Dosage: UNK, UNKNOWN
  8. ORAL ANTIDIABETICS [Concomitant]

REACTIONS (9)
  - MYOCARDIAL INFARCTION [None]
  - BALANCE DISORDER [None]
  - CARDIAC OPERATION [None]
  - MEMORY IMPAIRMENT [None]
  - ISCHAEMIC STROKE [None]
  - BLOOD GLUCOSE DECREASED [None]
  - NEUROPATHY PERIPHERAL [None]
  - EYE HAEMORRHAGE [None]
  - DIABETIC RETINOPATHY [None]
